FAERS Safety Report 14053125 (Version 2)
Quarter: 2017Q4

REPORT INFORMATION
  Report Type: Spontaneous
  Country: US (occurrence: US)
  Receive Date: 20171006
  Receipt Date: 20171121
  Transmission Date: 20180321
  Serious: No
  Sender: FDA-Public Use
  Company Number: US-JNJFOC-20170914320

PATIENT
  Sex: Male
  Weight: 90.72 kg

DRUGS (4)
  1. ACAMPROSATE [Concomitant]
     Active Substance: ACAMPROSATE
     Indication: ALCOHOLISM
     Route: 048
     Dates: start: 2014
  2. DEPAKOTE [Concomitant]
     Active Substance: DIVALPROEX SODIUM
     Indication: STRESS
     Route: 048
     Dates: start: 2014
  3. INVEGA TRINZA [Suspect]
     Active Substance: PALIPERIDONE PALMITATE
     Indication: SCHIZOAFFECTIVE DISORDER
     Route: 030
     Dates: start: 201706
  4. INVEGA TRINZA [Suspect]
     Active Substance: PALIPERIDONE PALMITATE
     Indication: SCHIZOAFFECTIVE DISORDER
     Route: 030
     Dates: start: 2016, end: 20170310

REACTIONS (4)
  - Product use in unapproved indication [Unknown]
  - Drug effect decreased [Unknown]
  - Off label use [Unknown]
  - Musculoskeletal pain [Not Recovered/Not Resolved]

NARRATIVE: CASE EVENT DATE: 2016
